FAERS Safety Report 19032464 (Version 1)
Quarter: 2021Q1

REPORT INFORMATION
  Report Type: Spontaneous
  Country: FR (occurrence: FR)
  Receive Date: 20210319
  Receipt Date: 20210319
  Transmission Date: 20210420
  Serious: Yes (Life-Threatening)
  Sender: FDA-Public Use
  Company Number: FR-BAXTER-2021BAX005140

PATIENT
  Age: 2 Day
  Sex: Male

DRUGS (1)
  1. SEVOFLURANE BAXTER 1 ML/ML, LIQUIDE POUR INHALATION PAR VAPEUR [Suspect]
     Active Substance: SEVOFLURANE
     Indication: ANAESTHESIA
     Route: 055
     Dates: start: 20210128, end: 20210128

REACTIONS (2)
  - Bradypnoea [Recovered/Resolved]
  - Cardio-respiratory arrest neonatal [Recovered/Resolved]

NARRATIVE: CASE EVENT DATE: 20210128
